FAERS Safety Report 24772361 (Version 2)
Quarter: 2025Q3

REPORT INFORMATION
  Report Type: Report from Study
  Country: US (occurrence: US)
  Receive Date: 20241224
  Receipt Date: 20250810
  Transmission Date: 20251021
  Serious: Yes (Hospitalization)
  Sender: ALEXION PHARMACEUTICALS
  Company Number: US-AstraZeneca-CH-00770234A

PATIENT
  Sex: Male
  Weight: 88.435 kg

DRUGS (2)
  1. BENRALIZUMAB [Suspect]
     Active Substance: BENRALIZUMAB
     Indication: Illness
     Dosage: 30 MILLIGRAM PER MILLILITR, Q4W,  INJECT THE CONTENTS OF 1 PEN (30 MG) UNDER THE SKIN AT WEEKS 0, 4, AND 8
  2. BENRALIZUMAB [Suspect]
     Active Substance: BENRALIZUMAB
     Dosage: 30 MILLIGRAM PER MILLILITRE, Q8W, INJECT THE CONTENTS OF 1 PEN (30 MG) UNDER THE SKIN EVERY 8 WEEKS THEREAFTER

REACTIONS (2)
  - Influenza [Unknown]
  - Dyspnoea [Recovering/Resolving]
